FAERS Safety Report 26081807 (Version 2)
Quarter: 2025Q4

REPORT INFORMATION
  Report Type: Report from Study
  Country: US (occurrence: US)
  Receive Date: 20251124
  Receipt Date: 20251201
  Transmission Date: 20260118
  Serious: No
  Sender: ABBVIE
  Company Number: US-ABBVIE-6555707

PATIENT
  Age: 69 Year
  Sex: Female
  Weight: 61.688 kg

DRUGS (4)
  1. VYALEV [Suspect]
     Active Substance: FOSCARBIDOPA\FOSLEVODOPA
     Indication: Parkinson^s disease
     Dosage: 24-HOUR INFUSION
     Route: 058
     Dates: start: 20251023
  2. MIRTAZAPINE [Concomitant]
     Active Substance: MIRTAZAPINE
     Indication: Product used for unknown indication
  3. GABAPENTIN [Concomitant]
     Active Substance: GABAPENTIN
     Indication: Spinal stenosis
  4. VENLAFAXINE HCL [Concomitant]
     Active Substance: VENLAFAXINE HYDROCHLORIDE
     Indication: Anxiety

REACTIONS (6)
  - Feeling jittery [Unknown]
  - Somnolence [Unknown]
  - Dizziness [Recovered/Resolved]
  - Neck pain [Recovering/Resolving]
  - Infusion site pain [Recovered/Resolved]
  - Fall [Recovered/Resolved]

NARRATIVE: CASE EVENT DATE: 20251001
